FAERS Safety Report 8517876-9 (Version None)
Quarter: 2012Q3

REPORT INFORMATION
  Report Type: 
  Country: None (occurrence: None)
  Receive Date: 20120718
  Receipt Date: 20110627
  Transmission Date: 20120928
  Serious: No
  Sender: FDA-Public Use
  Company Number: US-BRISTOL-MYERS SQUIBB COMPANY-15857188

PATIENT
  Age: 81 Year
  Sex: Female
  Weight: 59 kg

DRUGS (3)
  1. SIMVASTATIN [Concomitant]
  2. COUMADIN [Suspect]
     Dosage: 4MG 5 DAYS/WK;EXP:21FEB12 AND 3MG 2 DAYS/WK;21FEB12,FOR ABOUT 1 MONTH,INCD TO 28MG/WK (4MG;PO;QD)
     Route: 048
  3. OMEPRAZOLE [Concomitant]

REACTIONS (1)
  - INTERNATIONAL NORMALISED RATIO INCREASED [None]
